FAERS Safety Report 19101149 (Version 7)
Quarter: 2022Q4

REPORT INFORMATION
  Report Type: Spontaneous
  Country: FR (occurrence: FR)
  Receive Date: 20210407
  Receipt Date: 20221010
  Transmission Date: 20230113
  Serious: Yes (Death, Other)
  Sender: FDA-Public Use
  Company Number: FR-AUROBINDO-AUR-APL-2021-014401

PATIENT
  Age: 6 Year
  Sex: Male

DRUGS (4)
  1. DOXYLAMINE [Suspect]
     Active Substance: DOXYLAMINE
     Indication: Product used for unknown indication
     Dosage: UNK
     Route: 065
  2. ACETAMINOPHEN [Suspect]
     Active Substance: ACETAMINOPHEN
     Indication: Product used for unknown indication
     Dosage: UNK
     Route: 065
  3. HELIUM [Suspect]
     Active Substance: HELIUM
     Indication: Product used for unknown indication
     Dosage: UNK
     Route: 065
  4. ACETAMINOPHEN [Concomitant]
     Active Substance: ACETAMINOPHEN
     Indication: Product used for unknown indication
     Dosage: UNK
     Route: 065

REACTIONS (10)
  - Emphysema [Fatal]
  - Asphyxia [Fatal]
  - Toxicity to various agents [Fatal]
  - Homicide [Fatal]
  - Intentional overdose [Fatal]
  - Victim of homicide [Fatal]
  - Coma [Fatal]
  - Somnolence [Fatal]
  - Intentional product misuse [Fatal]
  - Contraindicated product administered [Unknown]
